FAERS Safety Report 6437871-3 (Version None)
Quarter: 2009Q4

REPORT INFORMATION
  Report Type: 
  Country: None (occurrence: None)
  Receive Date: 20091112
  Receipt Date: 20091028
  Transmission Date: 20100525
  Serious: Yes (Life-Threatening)
  Sender: FDA-Public Use
  Company Number: TR-ROCHE-666421

PATIENT
  Age: 38 Year
  Sex: Male

DRUGS (3)
  1. NAPROXEN [Suspect]
     Route: 065
  2. AMOXICILLIN [Suspect]
     Route: 065
  3. PROPYL-THIOURACIL [Suspect]
     Indication: HYPERTHYROIDISM
     Route: 065

REACTIONS (1)
  - PURPURA FULMINANS [None]
